FAERS Safety Report 20045354 (Version 1)
Quarter: 2021Q4

REPORT INFORMATION
  Report Type: Spontaneous
  Country: GB (occurrence: GB)
  Receive Date: 20211108
  Receipt Date: 20211108
  Transmission Date: 20220303
  Serious: Yes (Disabling)
  Sender: FDA-Public Use
  Company Number: None

PATIENT
  Age: 78 Year
  Sex: Male
  Weight: 80 kg

DRUGS (14)
  1. ATORVASTATIN [Suspect]
     Active Substance: ATORVASTATIN
     Dosage: 40MG
     Route: 065
     Dates: start: 20210414
  2. FLUTICASONE FUROATE [Concomitant]
     Active Substance: FLUTICASONE FUROATE
     Dosage: 1-2 SPRAYS INTO EACH NOSTRIL ; WHEN C...
     Dates: start: 20200903
  3. CIPROFLOXACIN [Concomitant]
     Active Substance: CIPROFLOXACIN
     Dosage: 2 DOSAGE FORMS DAILY;
     Dates: start: 20210802, end: 20210823
  4. CROTAMITON [Concomitant]
     Active Substance: CROTAMITON
     Dosage: TO BE TAKEN THREE TIMES DAILY WHEN REQUIRED
     Dates: start: 20190503
  5. DOXYCYCLINE [Concomitant]
     Active Substance: DOXYCYCLINE
     Dosage: TAKE TWO NOW THEN TAKE ONE DAILY
     Dates: start: 20211007, end: 20211014
  6. DUTASTERIDE [Concomitant]
     Active Substance: DUTASTERIDE
     Dosage: 1 DOSAGE FORMS DAILY;
     Dates: start: 20210524
  7. BECLOMETHASONE\FORMOTEROL [Concomitant]
     Active Substance: BECLOMETHASONE\FORMOTEROL
     Dosage: 4 DOSAGE FORMS DAILY; TWO PUFFS TO BE TAKEN TWICE DAILY AND WHEN REQU...
     Dates: start: 20160805
  8. BETAMETHASONE VALERATE\FUSIDIC ACID [Concomitant]
     Active Substance: BETAMETHASONE VALERATE\FUSIDIC ACID
     Dosage: 2 DOSAGE FORMS DAILY; APPLY TO RIGHT ANKLE FOR 7 DAYS
     Dates: start: 20211007
  9. HYDROCORTISONE [Concomitant]
     Active Substance: HYDROCORTISONE
     Dosage: 2 DOSAGE FORMS DAILY; TO LEG
     Dates: start: 20190718
  10. LOSARTAN [Concomitant]
     Active Substance: LOSARTAN
     Dosage: 1 DOSAGE FORMS DAILY;
     Dates: start: 20210421
  11. MOMETASONE [Concomitant]
     Active Substance: MOMETASONE
     Dosage: 1 DOSAGE FORMS DAILY; THINLY TO WORST AREAS
     Dates: start: 20201105
  12. ALBUTEROL [Concomitant]
     Active Substance: ALBUTEROL
     Dosage: 2 DOSAGE FORMS
     Route: 055
     Dates: start: 20150618
  13. DIBUCAINE HYDROCHLORIDE\PREDNISOLONE [Concomitant]
     Active Substance: DIBUCAINE HYDROCHLORIDE\PREDNISOLONE
     Dosage: APPLY TWICE DAILY AS NEEDED
     Dates: start: 20150304
  14. TAMOXIFEN [Concomitant]
     Active Substance: TAMOXIFEN
     Dosage: 1 DOSAGE FORMS DAILY;
     Dates: start: 20200316

REACTIONS (2)
  - Erectile dysfunction [Not Recovered/Not Resolved]
  - Lower urinary tract symptoms [Unknown]

NARRATIVE: CASE EVENT DATE: 20210414
